FAERS Safety Report 17265355 (Version 1)
Quarter: 2020Q1

REPORT INFORMATION
  Report Type: Spontaneous
  Country: DE (occurrence: DE)
  Receive Date: 20200114
  Receipt Date: 20200114
  Transmission Date: 20200409
  Serious: Yes (Life-Threatening, Hospitalization, Other)
  Sender: FDA-Public Use
  Company Number: DE-B.I. PHARMACEUTICALS,INC./RIDGEFIELD-2020-12-001928

PATIENT
  Age: 70 Year
  Sex: Male
  Weight: 77 kg

DRUGS (2)
  1. JARDIANCE [Suspect]
     Active Substance: EMPAGLIFLOZIN
     Indication: TYPE 2 DIABETES MELLITUS
     Route: 048
  2. GLIB S-RATIOPHARM [Concomitant]
     Indication: TYPE 2 DIABETES MELLITUS
     Dosage: EINNAHME SEIT MEHREREN JAHREN
     Route: 048

REACTIONS (4)
  - Hyperglycaemia [Recovered/Resolved]
  - Diabetic coma [Recovered/Resolved]
  - Thirst [Recovered/Resolved]
  - Dizziness [Recovered/Resolved]

NARRATIVE: CASE EVENT DATE: 20191011
